FAERS Safety Report 10154286 (Version 1)
Quarter: 2014Q2

REPORT INFORMATION
  Report Type: Spontaneous
  Country: US (occurrence: US)
  Receive Date: 20140506
  Receipt Date: 20140506
  Transmission Date: 20141212
  Serious: No
  Sender: FDA-Public Use
  Company Number: US-JNJFOC-20140420364

PATIENT
  Sex: Female
  Weight: 85.28 kg

DRUGS (9)
  1. SANDOZ FENTANYL TRANSDERMAL SYSTEM [Suspect]
     Indication: PAIN
     Route: 062
     Dates: start: 20140415
  2. XANAX [Concomitant]
     Indication: ANXIETY
     Dosage: AS NEEDED
  3. PROTONIX [Concomitant]
     Indication: ULCER
     Route: 048
  4. ONDANSETRON HCL [Concomitant]
     Indication: PRODUCT USED FOR UNKNOWN INDICATION
     Dosage: AS NEEDED
     Route: 048
  5. AMBIEN [Concomitant]
     Indication: SLEEP DISORDER THERAPY
     Dosage: AS NEEDED
     Route: 048
  6. WARFARIN [Concomitant]
     Indication: THROMBOSIS PROPHYLAXIS
     Dosage: ON TUESDAYS AND MONDAY
     Route: 048
     Dates: start: 2014
  7. ADVAIR DISKUS [Concomitant]
     Indication: ASTHMA
     Dosage: 250/50MG
     Route: 045
  8. SALBUTAMOL [Concomitant]
     Indication: ASTHMA
     Dosage: 180 UG
     Route: 045
  9. OXYCODONE AND ACETAMINOPHEN [Concomitant]
     Indication: PAIN
     Dosage: 10/325 MG TABLETS
     Route: 048
     Dates: start: 201401

REACTIONS (3)
  - Wrong technique in drug usage process [Unknown]
  - Product quality issue [Unknown]
  - Wrong technique in drug usage process [Unknown]
